FAERS Safety Report 24426416 (Version 2)
Quarter: 2025Q3

REPORT INFORMATION
  Report Type: Report from Study
  Country: US (occurrence: US)
  Receive Date: 20241011
  Receipt Date: 20250809
  Transmission Date: 20251021
  Serious: Yes (Hospitalization, Other)
  Sender: ALEXION PHARMACEUTICALS
  Company Number: US-AstraZeneca-CH-00716794A

PATIENT
  Sex: Female

DRUGS (1)
  1. CALQUENCE [Suspect]
     Active Substance: ACALABRUTINIB
     Indication: Chronic lymphocytic leukaemia
     Dosage: 100 MILLIGRAM, BID
     Dates: start: 202304

REACTIONS (6)
  - Clostridium difficile infection [Unknown]
  - Pyrexia [Unknown]
  - Muscle spasms [Unknown]
  - Candida infection [Unknown]
  - Dry mouth [Unknown]
  - Drug hypersensitivity [Unknown]
